FAERS Safety Report 7770188-3 (Version None)
Quarter: 2011Q3

REPORT INFORMATION
  Report Type: 
  Country: None (occurrence: None)
  Receive Date: 20110922
  Receipt Date: 20100908
  Transmission Date: 20111222
  Serious: No
  Sender: FDA-Public Use
  Company Number: US-ASTRAZENECA-2010SE42220

PATIENT
  Age: 43 Year
  Sex: Female

DRUGS (14)
  1. SEROQUEL [Suspect]
     Dosage: TWO TIMES A DAY
     Route: 048
     Dates: start: 20080101, end: 20100904
  2. SEROQUEL [Suspect]
     Dosage: 400 MG IN PM
     Route: 048
     Dates: start: 20100904
  3. LITHIUM CARBONATE [Concomitant]
  4. SEROQUEL [Suspect]
     Dosage: 400 MG IN PM
     Route: 048
     Dates: start: 20100904
  5. SEROQUEL [Suspect]
     Dosage: 200 MG IN AM AND 400 MG IN PM
     Route: 048
     Dates: start: 20100907
  6. LEVOTHYROXINE SODIUM [Concomitant]
  7. LORAZEPAM [Concomitant]
     Dosage: AS NEEDED
  8. ASPIRIN [Concomitant]
  9. NEXIUM [Concomitant]
     Route: 048
  10. METOPROLOL TARTRATE [Concomitant]
  11. SEROQUEL [Suspect]
     Dosage: TWO TIMES A DAY
     Route: 048
     Dates: start: 20080101, end: 20100904
  12. SEROQUEL [Suspect]
     Indication: BIPOLAR DISORDER
     Dosage: 200 MG IN AM AND 400 MG IN PM
     Route: 048
     Dates: start: 20060101, end: 20080101
  13. SEROQUEL [Suspect]
     Indication: MANIA
     Dosage: 200 MG IN AM AND 400 MG IN PM
     Route: 048
     Dates: start: 20060101, end: 20080101
  14. SEROQUEL [Suspect]
     Dosage: 200 MG IN AM AND 400 MG IN PM
     Route: 048
     Dates: start: 20100907

REACTIONS (6)
  - DRUG WITHDRAWAL SYNDROME [None]
  - THERAPY REGIMEN CHANGED [None]
  - VOMITING [None]
  - INSOMNIA [None]
  - TREMOR [None]
  - NAUSEA [None]
